FAERS Safety Report 23225479 (Version 2)
Quarter: 2023Q4

REPORT INFORMATION
  Report Type: Report from Study
  Country: US (occurrence: US)
  Receive Date: 20231124
  Receipt Date: 20231215
  Transmission Date: 20240110
  Serious: Yes (Hospitalization, Other)
  Sender: FDA-Public Use
  Company Number: US-ALXN-A202309090AA

PATIENT
  Sex: Female

DRUGS (1)
  1. STRENSIQ [Suspect]
     Active Substance: ASFOTASE ALFA
     Indication: Hypophosphatasia
     Dosage: UNK
     Route: 065
     Dates: start: 2022

REACTIONS (9)
  - Spinal fracture [Unknown]
  - Pain [Not Recovered/Not Resolved]
  - Bone density abnormal [Not Recovered/Not Resolved]
  - Osteoporosis [Unknown]
  - Fall [Unknown]
  - Ligament sprain [Unknown]
  - Head injury [Unknown]
  - Neck injury [Unknown]
  - Contusion [Unknown]
